FAERS Safety Report 9248032 (Version 4)
Quarter: 2014Q1

REPORT INFORMATION
  Report Type: Spontaneous
  Country: US (occurrence: US)
  Receive Date: 20130423
  Receipt Date: 20140203
  Transmission Date: 20141002
  Serious: No
  Sender: FDA-Public Use
  Company Number: US-PFIZER INC-2013123301

PATIENT
  Age: 67 Year
  Sex: Female
  Weight: 52.15 kg

DRUGS (2)
  1. EFFEXOR XR [Suspect]
     Indication: ANXIETY
     Dosage: 75 MG, 1X/DAY
     Route: 048
  2. TOPROL XL [Concomitant]
     Indication: HYPERTENSION
     Dosage: 100 MG, UNK

REACTIONS (8)
  - Drug withdrawal syndrome [Unknown]
  - Nausea [Unknown]
  - Tinnitus [Unknown]
  - Dizziness [Unknown]
  - Emotional disorder [Unknown]
  - Nervousness [Unknown]
  - Insomnia [Unknown]
  - Malaise [Unknown]
